FAERS Safety Report 6922006-0 (Version None)
Quarter: 2010Q3

REPORT INFORMATION
  Report Type: 
  Country: None (occurrence: None)
  Receive Date: 20100806
  Receipt Date: 20090630
  Transmission Date: 20110219
  Serious: No
  Sender: FDA-Public Use
  Company Number: 2009-00292

PATIENT
  Age: 56 Year
  Sex: Female
  Weight: 59.8748 kg

DRUGS (4)
  1. ZICAM COLD REMEDY GEL SWABS [Suspect]
     Dosage: QD - TID X 6-7 YEARS AGO ;
  2. BONIVA [Concomitant]
  3. FISH OIL [Concomitant]
  4. CALCIUM WITH VITAMIN D [Concomitant]

REACTIONS (1)
  - ANOSMIA [None]
